FAERS Safety Report 8064661-0 (Version None)
Quarter: 2012Q1

REPORT INFORMATION
  Report Type: 
  Country: None (occurrence: None)
  Receive Date: 20120123
  Receipt Date: 20120117
  Transmission Date: 20120608
  Serious: Yes (Hospitalization)
  Sender: FDA-Public Use
  Company Number: US-ASTRAZENECA-2012SE00884

PATIENT
  Age: 55 Year
  Sex: Female

DRUGS (5)
  1. SINGULAIR [Concomitant]
  2. SYMBICORT [Suspect]
     Dosage: 160/4.5 MCG DAILY
     Route: 055
  3. PROAIR HFA [Concomitant]
  4. NEBULIZER [Concomitant]
  5. PREDNISONE [Concomitant]

REACTIONS (2)
  - ASTHMA [None]
  - CHRONIC OBSTRUCTIVE PULMONARY DISEASE [None]
